FAERS Safety Report 10802601 (Version 1)
Quarter: 2015Q1

REPORT INFORMATION
  Report Type: Spontaneous
  Country: US (occurrence: US)
  Receive Date: 20150217
  Receipt Date: 20150217
  Transmission Date: 20150721
  Serious: No
  Sender: FDA-Public Use
  Company Number: US-BRACCO-010962

PATIENT
  Sex: Male

DRUGS (2)
  1. MULTIHANCE [Suspect]
     Active Substance: GADOBENATE DIMEGLUMINE
     Indication: ARTHROGRAM
     Route: 042
     Dates: start: 20140529, end: 20140529
  2. ISOVUE 300 [Suspect]
     Active Substance: IOPAMIDOL
     Indication: ARTHROGRAM
     Route: 014
     Dates: start: 20140529, end: 20140529

REACTIONS (1)
  - Presyncope [Recovered/Resolved]

NARRATIVE: CASE EVENT DATE: 20140529
